FAERS Safety Report 14191200 (Version 1)
Quarter: 2017Q4

REPORT INFORMATION
  Report Type: Spontaneous
  Country: US (occurrence: US)
  Receive Date: 20171115
  Receipt Date: 20171115
  Transmission Date: 20180321
  Serious: Yes (Death, Hospitalization)
  Sender: FDA-Public Use
  Company Number: US-MYLANLABS-2017M1071422

PATIENT
  Age: 13 Year
  Sex: Female

DRUGS (5)
  1. ETOPOSIDE. [Suspect]
     Active Substance: ETOPOSIDE
     Indication: EWING^S SARCOMA
     Dosage: 12 WEEKS INDUCTION THERAPY, THEN 9-CYCLES THERAPY POSTSURGICALLY AS CONSOLIDATION THERAPY
     Route: 065
  2. DOXORUBICIN [Suspect]
     Active Substance: DOXORUBICIN
     Indication: EWING^S SARCOMA
     Dosage: 12 WEEKS INDUCTION THERAPY, THEN 9-CYCLES THERAPY POSTSURGICALLY AS CONSOLIDATION THERAPY
     Route: 065
  3. CYCLOPHOSPHAMIDE. [Suspect]
     Active Substance: CYCLOPHOSPHAMIDE
     Indication: EWING^S SARCOMA
     Dosage: 12 WEEKS INDUCTION THERAPY, THEN 9-CYCLES THERAPY POSTSURGICALLY AS CONSOLIDATION THERAPY
     Route: 065
  4. VINCRISTINE [Suspect]
     Active Substance: VINCRISTINE
     Indication: EWING^S SARCOMA
     Dosage: 12 WEEKS INDUCTION THERAPY, THEN 9-CYCLES THERAPY POSTSURGICALLY AS CONSOLIDATION THERAPY
     Route: 065
  5. IFOSFAMIDE. [Suspect]
     Active Substance: IFOSFAMIDE
     Indication: EWING^S SARCOMA
     Dosage: 12 WEEKS INDUCTION THERAPY, THEN 9-CYCLES THERAPY POSTSURGICALLY AS CONSOLIDATION THERAPY
     Route: 065

REACTIONS (5)
  - Acute myeloid leukaemia [Fatal]
  - Cerebral disorder [Fatal]
  - Lung disorder [Fatal]
  - Tumour lysis syndrome [Fatal]
  - Metabolic acidosis [Fatal]
